FAERS Safety Report 4354332-6 (Version None)
Quarter: 2004Q2

REPORT INFORMATION
  Report Type: 
  Country: None (occurrence: None)
  Receive Date: 20040502
  Receipt Date: 20040426
  Transmission Date: 20050107
  Serious: Yes (Death)
  Sender: FDA-Public Use
  Company Number: ENDC20040017

PATIENT
  Age: 34 Year
  Sex: Male
  Weight: 105.2345 kg

DRUGS (1)
  1. ENDOCET  UNK ENDO [Suspect]
     Dates: end: 20030301

REACTIONS (11)
  - ACCIDENT [None]
  - AORTIC ATHEROSCLEROSIS [None]
  - CARDIAC DISORDER [None]
  - CONTUSION [None]
  - CORONARY ARTERY ATHEROSCLEROSIS [None]
  - DRUG TOXICITY [None]
  - HEPATIC CONGESTION [None]
  - HEPATIC STEATOSIS [None]
  - HEPATOSPLENOMEGALY [None]
  - NERVOUS SYSTEM DISORDER [None]
  - PULMONARY CONGESTION [None]
